FAERS Safety Report 7388192-6 (Version None)
Quarter: 2011Q1

REPORT INFORMATION
  Report Type: 
  Country: None (occurrence: None)
  Receive Date: 20110324
  Receipt Date: 20110316
  Transmission Date: 20110831
  Serious: Yes (Hospitalization)
  Sender: FDA-Public Use
  Company Number: 029384

PATIENT
  Sex: Male

DRUGS (1)
  1. NEUPRO [Suspect]
     Dosage: (1 MG TRANSDERMAL)
     Route: 062

REACTIONS (1)
  - PANCREATITIS [None]
